FAERS Safety Report 17228815 (Version 2)
Quarter: 2020Q1

REPORT INFORMATION
  Report Type: Spontaneous
  Country: IN (occurrence: IN)
  Receive Date: 20200103
  Receipt Date: 20200213
  Transmission Date: 20200409
  Serious: Yes (Other)
  Sender: FDA-Public Use
  Company Number: IN-PFIZER INC-2018302589

PATIENT
  Age: 39 Year
  Sex: Female
  Weight: 76 kg

DRUGS (1)
  1. CRIZALK [Suspect]
     Active Substance: CRIZOTINIB
     Indication: NON-SMALL CELL LUNG CANCER
     Dosage: 250 MG, 2X/DAY
     Route: 048
     Dates: start: 20170623

REACTIONS (12)
  - Pleural effusion [Unknown]
  - Diarrhoea [Unknown]
  - Vertigo [Unknown]
  - Asthenia [Unknown]
  - Vomiting [Unknown]
  - Weight decreased [Unknown]
  - Respiratory distress [Unknown]
  - Neoplasm progression [Unknown]
  - Insomnia [Unknown]
  - Pyrexia [Unknown]
  - Oedema peripheral [Unknown]
  - Pneumonitis [Unknown]

NARRATIVE: CASE EVENT DATE: 20170822
